FAERS Safety Report 17163330 (Version 1)
Quarter: 2019Q4

REPORT INFORMATION
  Report Type: Other
  Country: FR (occurrence: FR)
  Receive Date: 20191217
  Receipt Date: 20191217
  Transmission Date: 20200122
  Serious: Yes (Hospitalization, Other)
  Sender: FDA-Public Use
  Company Number: FR-ASTELLAS-2019US049496

PATIENT
  Age: 77 Year
  Sex: Male

DRUGS (15)
  1. VANCOMYCINE SANDOZ [Suspect]
     Active Substance: VANCOMYCIN
     Indication: STAPHYLOCOCCAL INFECTION
     Route: 042
     Dates: start: 20191011, end: 20191014
  2. MODOPAR [Concomitant]
     Active Substance: BENSERAZIDE HYDROCHLORIDE\LEVODOPA
     Dosage: 250 MG, ONCE DAILY (1-1-0)
     Route: 048
  3. AZILECT [Concomitant]
     Active Substance: RASAGILINE MESYLATE
     Indication: PARKINSON^S DISEASE
     Dosage: 1 MG, ONCE DAILY (1-0-0)
     Route: 048
  4. CALCIDOSE                          /07357001/ [Concomitant]
     Active Substance: CALCIUM CARBONATE
     Indication: CALCIUM DEFICIENCY
     Dosage: 1000 MG, ONCE DAILY (500, 1-0-1)
     Route: 048
     Dates: start: 20191001
  5. EUROBIOL                           /00014701/ [Concomitant]
     Indication: PANCREATIC FAILURE
     Dosage: 75000 IU, ONCE DAILY (2-2-2, 12500 UNIT/DOSE)
     Route: 048
     Dates: start: 20191007
  6. ATHYMIL [Concomitant]
     Active Substance: MIANSERIN HYDROCHLORIDE
     Indication: DEPRESSION
     Dosage: 10 MG, ONCE DAILY (0-0-0-1)
     Route: 048
  7. PANTOPRAZOLE [Concomitant]
     Active Substance: PANTOPRAZOLE
     Indication: GASTROINTESTINAL MOTILITY DISORDER
     Dosage: 40 MG, ONCE DAILY (0-0-1)
     Route: 048
  8. MYCAMINE [Suspect]
     Active Substance: MICAFUNGIN SODIUM
     Indication: SYSTEMIC CANDIDA
     Dosage: 100 MG, ONCE DAILY (0-1-0)
     Route: 042
     Dates: start: 20191012, end: 20191020
  9. PIPERACILLINE / TAZOBACTAM MYLAN [Suspect]
     Active Substance: PIPERACILLIN SODIUM\TAZOBACTAM SODIUM
     Indication: STAPHYLOCOCCAL INFECTION
     Dosage: 3 DF, ONCE DAILY (1-1-1)
     Route: 042
     Dates: start: 20191011, end: 20191014
  10. LOPERAMIDE ARROW [Concomitant]
     Active Substance: LOPERAMIDE
     Indication: DIARRHOEA
     Dosage: 24 MG, ONCE DAILY (3-3-3-3)
     Route: 048
     Dates: start: 20190621
  11. LOVENOX [Concomitant]
     Active Substance: ENOXAPARIN SODIUM
     Indication: THROMBOSIS PROPHYLAXIS
     Dosage: 4000 IU, ONCE DAILY (1-0-0)
     Route: 058
     Dates: start: 20190920, end: 20191015
  12. ZYMAD [Concomitant]
     Active Substance: CHOLECALCIFEROL
     Indication: VITAMIN SUPPLEMENTATION
     Dosage: 1 DF, 1 VIAL EVERY 15 DAYS (80 000 UI)
     Route: 048
     Dates: start: 20190923
  13. MODOPAR [Concomitant]
     Active Substance: BENSERAZIDE HYDROCHLORIDE\LEVODOPA
     Indication: PARKINSON^S DISEASE
     Dosage: 125 MG, ONCE DAILY (0-0-1, 100 MG/25 MG)
     Route: 048
  14. CIRCADIN [Concomitant]
     Active Substance: MELATONIN
     Indication: SLEEP DISORDER
     Dosage: 2 MG, ONCE DAILY (0-0-0-1)
     Route: 048
  15. SMECTA [Concomitant]
     Active Substance: MONTMORILLONITE
     Indication: GASTROINTESTINAL MOTILITY DISORDER
     Dosage: 9 G, ONCE DAILY (1-1-1)
     Route: 048

REACTIONS (2)
  - Tubulointerstitial nephritis [Not Recovered/Not Resolved]
  - Acute kidney injury [Not Recovered/Not Resolved]

NARRATIVE: CASE EVENT DATE: 20191013
